FAERS Safety Report 8537035 (Version 2)
Quarter: 2013Q1

REPORT INFORMATION
  Report Type: Spontaneous
  Country: US (occurrence: US)
  Receive Date: 20120430
  Receipt Date: 20130211
  Transmission Date: 20140127
  Serious: Yes (Other)
  Sender: FDA-Public Use
  Company Number: US-BRISTOL-MYERS SQUIBB COMPANY-16539827

PATIENT
  Age: 59 Year
  Sex: Male
  Weight: 141 kg

DRUGS (4)
  1. ABILIFY [Suspect]
     Indication: MAJOR DEPRESSION
  2. ABILIFY [Suspect]
     Indication: PSYCHOTIC DISORDER
  3. METFORMIN HCL [Suspect]
     Indication: DIABETES MELLITUS
  4. PAXIL [Suspect]

REACTIONS (2)
  - Nephrolithiasis [Unknown]
  - Blood glucose increased [Unknown]
